FAERS Safety Report 6727499-X (Version None)
Quarter: 2010Q2

REPORT INFORMATION
  Report Type: 
  Country: None (occurrence: None)
  Receive Date: 20100517
  Receipt Date: 20100506
  Transmission Date: 20101027
  Serious: Yes (Other)
  Sender: FDA-Public Use
  Company Number: US-BRISTOL-MYERS SQUIBB COMPANY-15103757

PATIENT
  Age: 10 Year
  Sex: Female

DRUGS (9)
  1. CYCLOPHOSPHAMIDE [Suspect]
     Indication: TERATOMA
  2. CISPLATIN [Suspect]
     Indication: TERATOMA
     Dosage: 20MG/M2/D FOR 5 DAYS Q3W, DAILY 4-HR IV INFUSION WITH 500MG/KG OF MANNITOL
     Route: 042
  3. VINCRISTINE SULFATE [Suspect]
     Indication: TERATOMA
  4. BLEOMYCIN SULFATE [Suspect]
     Indication: TERATOMA
     Dosage: 1 DOSAGEFORM = 15 U/M2
     Route: 042
  5. VINBLASTINE SULFATE [Suspect]
     Indication: TERATOMA
     Route: 042
  6. DACTINOMYCIN [Suspect]
     Indication: TERATOMA
  7. MANNITOL [Concomitant]
  8. METOCLOPRAMIDE HCL [Concomitant]
     Indication: PREMEDICATION
  9. DIPHENHYDRAMINE HCL [Concomitant]
     Indication: PREMEDICATION

REACTIONS (11)
  - DRUG TOXICITY [None]
  - HYPOCALCAEMIA [None]
  - HYPOMAGNESAEMIA [None]
  - HYPONATRAEMIA [None]
  - HYPOPHAGIA [None]
  - INTESTINAL OBSTRUCTION [None]
  - RENAL SALT-WASTING SYNDROME [None]
  - RENAL TUBULAR DISORDER [None]
  - VIRAL INFECTION [None]
  - VOMITING [None]
  - WEIGHT DECREASED [None]
